FAERS Safety Report 18120839 (Version 1)
Quarter: 2020Q3

REPORT INFORMATION
  Report Type: Spontaneous
  Country: CA (occurrence: CA)
  Receive Date: 20200806
  Receipt Date: 20200806
  Transmission Date: 20201103
  Serious: Yes (Hospitalization)
  Sender: FDA-Public Use
  Company Number: CA-009507513-2008CAN001773

PATIENT
  Age: 86 Year
  Sex: Male
  Weight: 81 kg

DRUGS (1)
  1. INVANZ [Suspect]
     Active Substance: ERTAPENEM SODIUM
     Indication: OSTEITIS
     Dosage: 1.0 GRAM 1 EVERY 24 HOURS; DOSAGE FORM: POWDER FOR SOLUTION INTRAMUSCULAR
     Route: 042

REACTIONS (3)
  - Fall [Unknown]
  - Confusional state [Unknown]
  - Delirium [Unknown]
